FAERS Safety Report 6671441-7 (Version None)
Quarter: 2010Q2

REPORT INFORMATION
  Report Type: 
  Country: None (occurrence: None)
  Receive Date: 20100406
  Receipt Date: 20100406
  Transmission Date: 20101027
  Serious: Yes (Other)
  Sender: FDA-Public Use
  Company Number: None

PATIENT
  Age: 63 Year
  Sex: Female
  Weight: 69.8539 kg

DRUGS (3)
  1. ZYRTEC [Suspect]
     Indication: HYPERSENSITIVITY
     Dosage: 1 DAILY
     Dates: start: 20100323
  2. ZYRTEC [Suspect]
     Indication: HYPERSENSITIVITY
     Dosage: 1 DAILY
     Dates: start: 20100327
  3. ZYRTEC [Suspect]
     Indication: HYPERSENSITIVITY
     Dosage: 1 DAILY
     Dates: start: 20100328

REACTIONS (1)
  - INSOMNIA [None]
